FAERS Safety Report 25529156 (Version 2)
Quarter: 2025Q3

REPORT INFORMATION
  Report Type: Spontaneous
  Country: US (occurrence: US)
  Receive Date: 20250708
  Receipt Date: 20250725
  Transmission Date: 20251021
  Serious: No
  Sender: PFIZER
  Company Number: US-PFIZER INC-202500083928

PATIENT
  Age: 35 Year
  Sex: Female

DRUGS (5)
  1. LITFULO [Suspect]
     Active Substance: RITLECITINIB TOSYLATE
     Indication: Alopecia areata
     Dosage: 50 MG, DAILY
     Dates: start: 20250402
  2. MINOXIDIL [Concomitant]
     Active Substance: MINOXIDIL
     Indication: Alopecia
  3. OPZELURA [Concomitant]
     Active Substance: RUXOLITINIB PHOSPHATE
     Indication: Alopecia
     Dosage: 1.5 %, BID
  4. KETOCONAZOLE [Concomitant]
     Active Substance: KETOCONAZOLE
     Indication: Alopecia
     Dosage: 2 %, DAILY
  5. KETOCONAZOLE [Concomitant]
     Active Substance: KETOCONAZOLE
     Indication: Skin exfoliation

REACTIONS (3)
  - Fatigue [Not Recovered/Not Resolved]
  - Acne [Recovering/Resolving]
  - Disease recurrence [Unknown]

NARRATIVE: CASE EVENT DATE: 20250101
